FAERS Safety Report 16320945 (Version 1)
Quarter: 2019Q2

REPORT INFORMATION
  Report Type: Spontaneous
  Country: US (occurrence: US)
  Receive Date: 20190516
  Receipt Date: 20190516
  Transmission Date: 20190711
  Serious: Yes (Other)
  Sender: FDA-Public Use
  Company Number: US-HIKMA PHARMACEUTICALS USA INC.-US-H14001-19-03206

PATIENT
  Sex: Female

DRUGS (2)
  1. PREDNISONE. [Suspect]
     Active Substance: PREDNISONE
     Indication: MYALGIA
     Dosage: 5 MG, 10 MG, AND 20 MG PER DAY
     Route: 065
  2. PREDNISONE. [Suspect]
     Active Substance: PREDNISONE
     Indication: MYALGIA
     Dosage: 5 MG, 10 MG, AND 20 MG PER DAY
     Route: 065

REACTIONS (5)
  - Intraocular pressure decreased [Unknown]
  - Drug ineffective [Unknown]
  - Rheumatoid factor increased [Unknown]
  - Cataract [Unknown]
  - Blood pressure increased [Unknown]
